FAERS Safety Report 7092313-2 (Version None)
Quarter: 2010Q4

REPORT INFORMATION
  Report Type: 
  Country: None (occurrence: None)
  Receive Date: 20101109
  Receipt Date: 20101108
  Transmission Date: 20110411
  Serious: Yes (Hospitalization, Other)
  Sender: FDA-Public Use
  Company Number: FR-BRISTOL-MYERS SQUIBB COMPANY-15355290

PATIENT
  Age: 73 Year
  Sex: Male

DRUGS (12)
  1. ELISOR TABS [Suspect]
     Route: 048
  2. STAGID [Suspect]
     Dosage: 2 DF = 2 TABS
     Route: 048
  3. NOVONORM [Suspect]
     Route: 048
  4. VOLTAREN [Suspect]
     Route: 048
  5. TANGANIL [Suspect]
     Route: 048
  6. VASTAREL [Suspect]
     Route: 048
  7. PERINDOPRIL ERBUMINE [Suspect]
     Route: 048
  8. KARDEGIC [Suspect]
  9. FORADIL [Suspect]
  10. TENORMIN [Suspect]
  11. EUROBIOL [Suspect]
     Dosage: 1 DOSAGE FORM=25000 U
  12. STABLON [Suspect]
     Dosage: 1DF=1TAB/D
     Route: 048

REACTIONS (3)
  - ANAEMIA HAEMOLYTIC AUTOIMMUNE [None]
  - LYMPHOPENIA [None]
  - OTITIS EXTERNA [None]
